FAERS Safety Report 16597301 (Version 2)
Quarter: 2020Q1

REPORT INFORMATION
  Report Type: Spontaneous
  Country: US (occurrence: US)
  Receive Date: 20190719
  Receipt Date: 20200302
  Transmission Date: 20200409
  Serious: Yes (Other)
  Sender: FDA-Public Use
  Company Number: US-GILEAD-2019-0418495

PATIENT
  Sex: Male

DRUGS (3)
  1. STRIBILD [Suspect]
     Active Substance: COBICISTAT\ELVITEGRAVIR\EMTRICITABINE\TENOFOVIR DISOPROXIL FUMARATE
     Indication: HIV INFECTION
     Dosage: UNK
     Route: 048
     Dates: start: 2015, end: 2017
  2. TRUVADA [Suspect]
     Active Substance: EMTRICITABINE\TENOFOVIR DISOPROXIL FUMARATE
     Indication: HIV INFECTION
     Dosage: UNK
     Route: 048
     Dates: start: 2000, end: 2008
  3. ATRIPLA [Suspect]
     Active Substance: EFAVIRENZ\EMTRICITABINE\TENOFOVIR DISOPROXIL FUMARATE
     Indication: HIV INFECTION
     Dosage: UNK
     Route: 048
     Dates: start: 2008, end: 2010

REACTIONS (14)
  - Anxiety [Not Recovered/Not Resolved]
  - Chronic kidney disease [Unknown]
  - Bone loss [Unknown]
  - Nephropathy [Unknown]
  - Renal cyst [Unknown]
  - Osteoporosis [Unknown]
  - Osteonecrosis [Unknown]
  - Bone density decreased [Unknown]
  - Pain [Not Recovered/Not Resolved]
  - Haematuria [Unknown]
  - Anhedonia [Not Recovered/Not Resolved]
  - Renal failure [Unknown]
  - Emotional distress [Not Recovered/Not Resolved]
  - Economic problem [Not Recovered/Not Resolved]
